FAERS Safety Report 20919375 (Version 2)
Quarter: 2024Q4

REPORT INFORMATION
  Report Type: Spontaneous
  Country: US (occurrence: US)
  Receive Date: 20220606
  Receipt Date: 20241025
  Transmission Date: 20250114
  Serious: No
  Sender: BRISTOL-MYERS SQUIBB COMPANY
  Company Number: US-CELGENE-USA-20211204294

PATIENT
  Age: 84 Year
  Sex: Male
  Weight: 75.45 kg

DRUGS (3)
  1. IDHIFA [Suspect]
     Active Substance: ENASIDENIB MESYLATE
     Indication: Acute myeloid leukaemia
     Dosage: 50 MILLIGRAM
     Route: 048
     Dates: start: 20190326
  2. VITAMIN C [Concomitant]
     Active Substance: ASCORBIC ACID
  3. IRON [Concomitant]
     Active Substance: IRON

REACTIONS (9)
  - Diarrhoea [Unknown]
  - Insomnia [Unknown]
  - Pruritus [Unknown]
  - Scab [Unknown]
  - Blood bilirubin increased [Unknown]
  - Platelet count decreased [Unknown]
  - Fatigue [Unknown]
  - Liver disorder [Unknown]
  - Precancerous skin lesion [Unknown]
